FAERS Safety Report 4971210-X (Version None)
Quarter: 2006Q1

REPORT INFORMATION
  Report Type: 
  Country: None (occurrence: None)
  Receive Date: 20060216
  Receipt Date: 20020520
  Transmission Date: 20060701
  Serious: Yes (Death, Life-Threatening, Hospitalization)
  Sender: FDA-Public Use
  Company Number: 2002IM000291

PATIENT
  Age: 56 Year
  Sex: Female
  Weight: 61.3263 kg

DRUGS (16)
  1. INTERFERON GAMMA-1B [Suspect]
     Indication: OVARIAN CANCER
     Dosage: 100 UG, TIW, SUBCUTANEOUS
     Route: 058
     Dates: start: 20020417, end: 20020422
  2. CARBOPLATIN [Suspect]
     Indication: OVARIAN CANCER
     Dosage: 773 MG, Q3W, INTRAVENOUS
     Route: 042
     Dates: start: 20020417, end: 20020417
  3. PACLITAXEL [Suspect]
     Indication: OVARIAN CANCER
     Dosage: 291 MG, Q3W, INTRAVENOUS
     Route: 042
     Dates: start: 20020417, end: 20020417
  4. DILAUDID [Concomitant]
  5. COUMADIN [Concomitant]
  6. ANUSOL HC [Concomitant]
  7. ATIVAN [Concomitant]
  8. LORTAB [Concomitant]
  9. SYNTHROID [Concomitant]
  10. CARBOPLATIN [Concomitant]
  11. PACLITAXEL [Concomitant]
  12. DECADRON [Concomitant]
  13. BENADRYL [Concomitant]
  14. ZANTAC [Concomitant]
  15. ANZEMET [Concomitant]
  16. NORMAL SALINE [Concomitant]

REACTIONS (5)
  - CEREBRAL HAEMORRHAGE [None]
  - DEEP VEIN THROMBOSIS [None]
  - GASTROINTESTINAL HAEMORRHAGE [None]
  - RENAL FAILURE ACUTE [None]
  - THROMBOCYTOPENIA [None]
